FAERS Safety Report 8958123 (Version 2)
Quarter: 2013Q1

REPORT INFORMATION
  Report Type: Spontaneous
  Country: US (occurrence: US)
  Receive Date: 20121211
  Receipt Date: 20130108
  Transmission Date: 20140127
  Serious: Yes (Other)
  Sender: FDA-Public Use
  Company Number: US-PFIZER INC-2012309481

PATIENT
  Age: 16 Year
  Sex: Female
  Weight: 53.5 kg

DRUGS (2)
  1. CHAPSTICK LIP BALM [Suspect]
     Indication: LIP DRY
     Dosage: THREE TO FOUR TIMES A DAY
     Dates: end: 20121130
  2. CHAPSTICK CLASSICS ORIGINAL [Suspect]
     Dosage: UNK

REACTIONS (3)
  - Application site vesicles [Recovering/Resolving]
  - Application site pustules [Recovering/Resolving]
  - Application site swelling [Recovering/Resolving]
